FAERS Safety Report 8674057 (Version 2)
Quarter: 2012Q4

REPORT INFORMATION
  Report Type: 
  Country: CO (occurrence: CO)
  Receive Date: 20120719
  Receipt Date: 20120904
  Transmission Date: 20130627
  Serious: Yes (Other)
  Sender: FDA-Public Use
  Company Number: CO-ELI_LILLY_AND_COMPANY-CO201207003151

PATIENT
  Age: 48 Year
  Sex: Male

DRUGS (2)
  1. ALIMTA [Suspect]
     Dosage: 1 g, unknown
  2. CISPLATIN [Concomitant]
     Dosage: 163 mg, unknown

REACTIONS (1)
  - Drug hypersensitivity [Recovered/Resolved]
